FAERS Safety Report 20087047 (Version 3)
Quarter: 2021Q4

REPORT INFORMATION
  Report Type: Spontaneous
  Country: US (occurrence: US)
  Receive Date: 20211118
  Receipt Date: 20211203
  Transmission Date: 20220303
  Serious: Yes (Other)
  Sender: FDA-Public Use
  Company Number: US-BoehringerIngelheim-2021-BI-138991

PATIENT
  Sex: Male

DRUGS (3)
  1. COMBIVENT [Suspect]
     Active Substance: ALBUTEROL SULFATE\IPRATROPIUM BROMIDE
     Indication: COVID-19 pneumonia
     Dosage: 2 INHALATIONS ONCE DAILY INHALATION AEROSOL
     Dates: start: 20211110
  2. AZITHROMYCIN [Concomitant]
     Active Substance: AZITHROMYCIN
     Indication: COVID-19 pneumonia
     Dosage: 500MG DAILY
     Dates: start: 20211110
  3. ALBUTEROL [Concomitant]
     Active Substance: ALBUTEROL
     Indication: COVID-19 pneumonia
     Dosage: 2 PUFFS EVERY 4 HOURS AS NEEDED  INHALED AEROSOL
     Dates: start: 20211110

REACTIONS (2)
  - COVID-19 pneumonia [Not Recovered/Not Resolved]
  - Off label use [Unknown]
